FAERS Safety Report 8519324-1 (Version None)
Quarter: 2012Q3

REPORT INFORMATION
  Report Type: 
  Country: None (occurrence: None)
  Receive Date: 20120718
  Receipt Date: 20120709
  Transmission Date: 20120928
  Serious: Yes (Disabling, Other)
  Sender: FDA-Public Use
  Company Number: US-PFIZER INC-2012147216

PATIENT
  Sex: Female
  Weight: 70.75 kg

DRUGS (2)
  1. LIPITOR [Concomitant]
     Indication: BLOOD CHOLESTEROL INCREASED
     Dosage: 20 MG, 1X/DAY
  2. XALATAN [Suspect]
     Indication: GLAUCOMA
     Dosage: UNK
     Dates: end: 20120101

REACTIONS (2)
  - BLINDNESS [None]
  - INTRAOCULAR PRESSURE INCREASED [None]
